FAERS Safety Report 10033902 (Version 2)
Quarter: 2014Q1

REPORT INFORMATION
  Report Type: Spontaneous
  Country: US (occurrence: US)
  Receive Date: 20140325
  Receipt Date: 20140328
  Transmission Date: 20141002
  Serious: No
  Sender: FDA-Public Use
  Company Number: US-009507513-1403USA011084

PATIENT
  Age: 31 Year
  Sex: Female

DRUGS (2)
  1. ASMANEX TWISTHALER [Suspect]
     Indication: ASTHMA
     Dosage: 110 MCG 1 STANDARD DOSE OF 30 / 1 INHALATION ONCE DAILY
     Route: 055
     Dates: start: 20140319
  2. PROAIR (ALBUTEROL SULFATE) [Concomitant]
     Dosage: 4 OR 5 TIMES A DAY

REACTIONS (3)
  - Dyspnoea [Not Recovered/Not Resolved]
  - Product quality issue [Unknown]
  - Drug dose omission [Unknown]
